FAERS Safety Report 20038111 (Version 1)
Quarter: 2021Q4

REPORT INFORMATION
  Report Type: Spontaneous
  Country: IT (occurrence: IT)
  Receive Date: 20211105
  Receipt Date: 20211105
  Transmission Date: 20220303
  Serious: Yes (Death, Other)
  Sender: FDA-Public Use
  Company Number: IT-PFIZER INC-202100985792

PATIENT
  Age: 84 Year
  Sex: Female

DRUGS (2)
  1. METHOTREXATE [Suspect]
     Active Substance: METHOTREXATE
     Indication: Breast cancer metastatic
     Dosage: 5 MG (GIVEN DURING A SINGLE DAY)
  2. CYCLOPHOSPHAMIDE [Suspect]
     Active Substance: CYCLOPHOSPHAMIDE
     Indication: Breast cancer metastatic
     Dosage: 50 MILLIGRAM, QD

REACTIONS (5)
  - Renal failure [Fatal]
  - Neutropenia [Fatal]
  - Thrombocytopenia [Fatal]
  - Diarrhoea [Fatal]
  - Toxicity to various agents [Fatal]
